FAERS Safety Report 10192827 (Version 1)
Quarter: 2014Q2

REPORT INFORMATION
  Report Type: Report from Study
  Country: US (occurrence: US)
  Receive Date: 20140523
  Receipt Date: 20140523
  Transmission Date: 20141212
  Serious: Yes (Hospitalization)
  Sender: FDA-Public Use
  Company Number: US-ONYX-2014-1119

PATIENT
  Age: 79 Year
  Sex: Male
  Weight: 89 kg

DRUGS (10)
  1. CARFILZOMIB [Suspect]
     Indication: PLASMA CELL MYELOMA
     Route: 042
     Dates: start: 20130603, end: 20140422
  2. POMALIDOMIDE [Concomitant]
     Indication: PLASMA CELL MYELOMA
     Route: 048
     Dates: start: 20130603, end: 20140421
  3. DEXAMETHASONE [Concomitant]
     Indication: PLASMA CELL MYELOMA
     Route: 048
     Dates: start: 20130603, end: 20140422
  4. DEXAMETHASONE [Concomitant]
     Indication: PREMEDICATION
     Route: 048
     Dates: start: 20140205, end: 20140205
  5. NOVOLOG [Concomitant]
     Indication: DIABETES MELLITUS
     Dates: start: 20130328
  6. LANTUS [Concomitant]
     Indication: DIABETES MELLITUS
     Dates: start: 20130328
  7. PLAVIX [Concomitant]
     Indication: CORONARY ARTERY DISEASE
     Dates: start: 20130328
  8. LASIX [Concomitant]
     Indication: HYPERTENSION
     Dates: start: 20130328
  9. ASPIRIN [Concomitant]
     Indication: CORONARY ARTERY DISEASE
     Dates: start: 20130328
  10. AMLODIPINE [Concomitant]
     Indication: HYPERTENSION
     Dates: start: 20130328

REACTIONS (1)
  - Clostridium difficile infection [Recovered/Resolved]
